FAERS Safety Report 10853835 (Version 1)
Quarter: 2015Q1

REPORT INFORMATION
  Report Type: Spontaneous
  Country: US (occurrence: None)
  Receive Date: 20150218
  Receipt Date: 20150218
  Transmission Date: 20150721
  Serious: Yes (Other)
  Sender: FDA-Public Use
  Company Number: None

PATIENT
  Age: 37 Year
  Sex: Female
  Weight: 83.92 kg

DRUGS (1)
  1. VIGAMOX [Suspect]
     Active Substance: MOXIFLOXACIN HYDROCHLORIDE

REACTIONS (7)
  - Eye irritation [None]
  - Eye pruritus [None]
  - Urticaria [None]
  - Ocular hyperaemia [None]
  - Eye swelling [None]
  - Visual impairment [None]
  - Optic neuritis [None]

NARRATIVE: CASE EVENT DATE: 20150122
